FAERS Safety Report 9067471 (Version 1)
Quarter: 2013Q1

REPORT INFORMATION
  Report Type: Spontaneous
  Country: GB (occurrence: GB)
  Receive Date: 20130214
  Receipt Date: 20130214
  Transmission Date: 20140127
  Serious: Yes (Other)
  Sender: FDA-Public Use
  Company Number: GB-MYLANLABS-2013S1002397

PATIENT
  Age: 53 Year
  Sex: Female
  Weight: 52 kg

DRUGS (5)
  1. CLARITHROMYCIN [Suspect]
     Indication: OTITIS MEDIA
     Route: 048
     Dates: start: 20121120, end: 20121127
  2. BECONASE [Suspect]
     Indication: EUSTACHIAN TUBE DISORDER
     Route: 045
     Dates: start: 20121120, end: 20121127
  3. BECONASE AQUEOUS [Suspect]
     Indication: OTITIS MEDIA
     Route: 045
     Dates: start: 20121120, end: 20121127
  4. PSEUDOEPHEDRINE HYDROCHLORIDE [Suspect]
     Indication: EUSTACHIAN TUBE DISORDER
     Route: 048
     Dates: start: 20121120, end: 20121127
  5. PSEUDOEPHEDRINE HYDROCHLORIDE [Suspect]
     Indication: OTITIS MEDIA
     Route: 048
     Dates: start: 20121120, end: 20121127

REACTIONS (15)
  - Aggression [Unknown]
  - Agitation [Unknown]
  - Brief psychotic disorder with marked stressors [Unknown]
  - Confusional state [Unknown]
  - Delusional perception [Unknown]
  - Feeling abnormal [Unknown]
  - Anxiety [Unknown]
  - Disturbance in attention [Unknown]
  - Poor quality sleep [Unknown]
  - Repetitive speech [Unknown]
  - Screaming [Unknown]
  - Staring [Unknown]
  - Stress [Unknown]
  - Unresponsive to stimuli [Unknown]
  - Abnormal dreams [Unknown]
